FAERS Safety Report 6409367-6 (Version None)
Quarter: 2009Q4

REPORT INFORMATION
  Report Type: 
  Country: None (occurrence: None)
  Receive Date: 20091021
  Receipt Date: 20091013
  Transmission Date: 20100525
  Serious: Yes (Death, Hospitalization)
  Sender: FDA-Public Use
  Company Number: US-GENENTECH-292380

PATIENT
  Age: 79 Year
  Sex: Female
  Weight: 47.6 kg

DRUGS (8)
  1. TRASTUZUMAB [Suspect]
     Indication: BLADDER CANCER
     Dosage: 4 MG/KG OVER 90 MINUTES ON DAY 1 ONLY
     Route: 042
     Dates: start: 20090316
  2. TRASTUZUMAB [Suspect]
     Dosage: 2 MG/KG OVER 30 MINUTES ON DAYS 8,15,22,29,36,43
     Route: 042
  3. PACLITAXEL [Suspect]
     Indication: BLADDER CANCER
     Dosage: 50 MG/M2 OVER 1 HOUR ON DAYS 1,8,15,22,29,36,43
     Route: 042
     Dates: start: 19900316
  4. RADIATION THERAPY [Suspect]
     Indication: BLADDER CANCER
     Dosage: 64.8 GY, UNK
     Dates: start: 20090316
  5. BAYER ASA [Concomitant]
     Indication: DRUG USE FOR UNKNOWN INDICATION
     Dosage: 81 MG, QD
  6. CADUET [Concomitant]
     Indication: DRUG USE FOR UNKNOWN INDICATION
     Dosage: 1 TABLET, QD
  7. LEVOTHYROXINE SODIUM [Concomitant]
     Indication: DRUG USE FOR UNKNOWN INDICATION
     Dosage: 75 A?G, QD
  8. TOPROL-XL [Concomitant]
     Indication: DRUG USE FOR UNKNOWN INDICATION
     Dosage: 25 A?G, QD

REACTIONS (1)
  - SMALL INTESTINAL PERFORATION [None]
